FAERS Safety Report 9342964 (Version 2)
Quarter: 2013Q4

REPORT INFORMATION
  Report Type: Spontaneous
  Country: US (occurrence: US)
  Receive Date: 20130611
  Receipt Date: 20131107
  Transmission Date: 20140711
  Serious: Yes (Hospitalization, Other)
  Sender: FDA-Public Use
  Company Number: US-B.I. PHARMACEUTICALS,INC./RIDGEFIELD-2013-BI-16088BP

PATIENT
  Sex: Male
  Weight: 62.51 kg

DRUGS (12)
  1. PRADAXA [Suspect]
     Indication: ATRIAL FIBRILLATION
     Route: 048
     Dates: start: 20120123, end: 20120228
  2. OCUVITE PRESEVISION [Concomitant]
     Route: 048
  3. PLETAL [Concomitant]
     Dosage: 100 MG
     Route: 048
  4. ASPIRIN [Concomitant]
     Dosage: 81 MG
     Route: 048
  5. COREG [Concomitant]
     Indication: HYPERTENSION
     Dosage: 12.5 MG
     Route: 048
  6. APRESOLINE [Concomitant]
     Dosage: 150 MG
     Route: 048
  7. LASIX [Concomitant]
     Indication: HYPERTENSION
     Dosage: 40 MG
     Route: 048
  8. LASIX [Concomitant]
     Indication: CARDIAC FAILURE CONGESTIVE
  9. MEVACOR [Concomitant]
     Indication: BLOOD CHOLESTEROL
     Dosage: 40 MG
     Route: 048
  10. POTASSIUM CHLORIDE [Concomitant]
     Dosage: 10 MEQ
     Route: 048
  11. TYLENOL PM EXTRA STRENGHT [Concomitant]
     Route: 048
  12. PACERONE [Concomitant]
     Dosage: 200 MG
     Route: 048

REACTIONS (5)
  - Upper gastrointestinal haemorrhage [Recovered/Resolved]
  - Haemorrhagic anaemia [Unknown]
  - Respiratory failure [Unknown]
  - Renal failure acute [Unknown]
  - Ecchymosis [Unknown]
